FAERS Safety Report 5671139-8 (Version None)
Quarter: 2008Q1

REPORT INFORMATION
  Report Type: 
  Country: None (occurrence: None)
  Receive Date: 20080318
  Receipt Date: 20080307
  Transmission Date: 20080703
  Serious: No
  Sender: FDA-Public Use
  Company Number: US-JNJFOC-20080202126

PATIENT
  Sex: Female

DRUGS (6)
  1. INVEGA [Suspect]
     Indication: POST-TRAUMATIC STRESS DISORDER
     Route: 048
  2. INVEGA [Suspect]
     Indication: MAJOR DEPRESSION
     Route: 048
  3. INVEGA [Suspect]
     Indication: BIPOLAR DISORDER
     Route: 048
  4. LEXAPRO [Concomitant]
     Route: 048
  5. CAMPRAL [Concomitant]
     Route: 048
  6. DEPAKOTE [Concomitant]
     Route: 048

REACTIONS (1)
  - PSYCHOMOTOR SKILLS IMPAIRED [None]
